FAERS Safety Report 17955131 (Version 1)
Quarter: 2020Q2

REPORT INFORMATION
  Report Type: Spontaneous
  Country: US (occurrence: US)
  Receive Date: 20200626
  Receipt Date: 20200626
  Transmission Date: 20200714
  Serious: Yes (Hospitalization)
  Sender: FDA-Public Use
  Company Number: None

PATIENT
  Age: 68 Year
  Sex: Male
  Weight: 140 kg

DRUGS (12)
  1. NIVOLUMAB 3MG/KG [Suspect]
     Active Substance: NIVOLUMAB
  2. LAMOTRIGINE. [Concomitant]
     Active Substance: LAMOTRIGINE
  3. KEPPRA [Concomitant]
     Active Substance: LEVETIRACETAM
  4. FAMOTIDINE. [Concomitant]
     Active Substance: FAMOTIDINE
  5. DEXAMETHASONE. [Concomitant]
     Active Substance: DEXAMETHASONE
  6. DOK [Concomitant]
     Active Substance: DOCUSATE SODIUM
  7. BEVACIZUMAB 15MG/KG [Suspect]
     Active Substance: BEVACIZUMAB
     Indication: GLIOBLASTOMA MULTIFORME
     Route: 042
     Dates: start: 20191111, end: 20200519
  8. QUETIAPINE. [Concomitant]
     Active Substance: QUETIAPINE
  9. ENALAPRIL [Concomitant]
     Active Substance: ENALAPRIL
  10. IPILIMUMAB [Concomitant]
     Active Substance: IPILIMUMAB
  11. ALLOPURINOL. [Concomitant]
     Active Substance: ALLOPURINOL
  12. ESCITALOPRAM [Concomitant]
     Active Substance: ESCITALOPRAM OXALATE

REACTIONS (8)
  - Decreased activity [None]
  - Gait disturbance [None]
  - Confusional state [None]
  - Muscular weakness [None]
  - Lethargy [None]
  - Hemiparesis [None]
  - Hallucination [None]
  - Hypersomnia [None]

NARRATIVE: CASE EVENT DATE: 20200117
